FAERS Safety Report 23508897 (Version 1)
Quarter: 2024Q1

REPORT INFORMATION
  Report Type: Spontaneous
  Country: US (occurrence: US)
  Receive Date: 20240209
  Receipt Date: 20240209
  Transmission Date: 20240410
  Serious: No
  Sender: FDA-Public Use
  Company Number: US-INSUD PHARMA-2401US00630

PATIENT

DRUGS (2)
  1. PROGESTERONE [Suspect]
     Active Substance: PROGESTERONE
     Indication: Product used for unknown indication
     Dosage: 1 CAPSULE DAILY
     Route: 048
     Dates: start: 20240122, end: 20240122
  2. PROGESTERONE [Suspect]
     Active Substance: PROGESTERONE
     Dosage: 1 CAPSULE DAILY
     Route: 048
     Dates: start: 201901

REACTIONS (3)
  - Nausea [Unknown]
  - Poor quality product administered [Unknown]
  - Product odour abnormal [Unknown]

NARRATIVE: CASE EVENT DATE: 20240122
